FAERS Safety Report 5892877-8 (Version None)
Quarter: 2008Q3

REPORT INFORMATION
  Report Type: 
  Country: None (occurrence: None)
  Receive Date: 20080922
  Receipt Date: 20080922
  Transmission Date: 20090109
  Serious: Yes (Life-Threatening, Hospitalization)
  Sender: FDA-Public Use
  Company Number: None

PATIENT
  Age: 42 Year
  Sex: Male
  Weight: 120.2032 kg

DRUGS (1)
  1. BYETTA [Suspect]
     Indication: DIABETES MELLITUS
     Dosage: 2 DAILY

REACTIONS (4)
  - ACTIVITIES OF DAILY LIVING IMPAIRED [None]
  - PAIN [None]
  - PANCREATITIS [None]
  - SLEEP DISORDER [None]
